FAERS Safety Report 17835310 (Version 3)
Quarter: 2022Q1

REPORT INFORMATION
  Report Type: Spontaneous
  Country: MX (occurrence: MX)
  Receive Date: 20200528
  Receipt Date: 20220215
  Transmission Date: 20220423
  Serious: Yes (Other)
  Sender: FDA-Public Use
  Company Number: MX-MYLANLABS-2020M1052793

PATIENT
  Age: 36 Year
  Sex: Male
  Weight: 115 kg

DRUGS (1)
  1. AZELASTINE HYDROCHLORIDE\FLUTICASONE PROPIONATE [Suspect]
     Active Substance: AZELASTINE HYDROCHLORIDE\FLUTICASONE PROPIONATE
     Indication: Rhinitis allergic
     Dosage: 1 DOSAGE FORM, QD
     Route: 045
     Dates: start: 20200518, end: 20200522

REACTIONS (3)
  - Epistaxis [Recovered/Resolved]
  - Nasal congestion [Recovered/Resolved]
  - Drug ineffective [Recovered/Resolved]

NARRATIVE: CASE EVENT DATE: 20200518
